FAERS Safety Report 16816469 (Version 1)
Quarter: 2019Q3

REPORT INFORMATION
  Report Type: Spontaneous
  Country: US (occurrence: US)
  Receive Date: 20190917
  Receipt Date: 20190917
  Transmission Date: 20191005
  Serious: No
  Sender: FDA-Public Use
  Company Number: US-RECKITT BENCKISER HEALTHCARE INT LIMITED-RB-86675-2019

PATIENT
  Age: 6 Year
  Sex: Male

DRUGS (3)
  1. GUAIFENSIN [Suspect]
     Active Substance: GUAIFENESIN
     Dosage: 3 MILLIGRAM, QD
     Route: 065
  2. GUAIFENSIN [Suspect]
     Active Substance: GUAIFENESIN
     Indication: PRODUCT USED FOR UNKNOWN INDICATION
     Dosage: 1 MILLIGRAM, BID
     Route: 065
  3. MUCINEX CHILDRENS MULTI-SYMPTOM COLD AND SORE THROAT [Suspect]
     Active Substance: ACETAMINOPHEN\DEXTROMETHORPHAN HYDROBROMIDE\GUAIFENESIN\PHENYLEPHRINE HYDROCHLORIDE
     Indication: NASAL CONGESTION
     Dosage: UNK
     Route: 065

REACTIONS (2)
  - Feeling of relaxation [Recovering/Resolving]
  - Psychomotor hyperactivity [Recovering/Resolving]
